FAERS Safety Report 8901911 (Version 1)
Quarter: 2012Q4

REPORT INFORMATION
  Report Type: Spontaneous
  Country: US (occurrence: None)
  Receive Date: 20121109
  Receipt Date: 20121109
  Transmission Date: 20130627
  Serious: Yes (Hospitalization)
  Sender: FDA-Public Use
  Company Number: None

PATIENT
  Age: 84 Year
  Sex: Female
  Weight: 76.4 kg

DRUGS (16)
  1. PACLITAXEL [Suspect]
     Indication: BREAST CANCER STAGE IV
     Dosage: 2 cycles
     Route: 042
     Dates: start: 20121018
  2. PACLITAXEL [Suspect]
     Indication: METASTASES TO LIVER
     Dosage: 2 cycles
     Route: 042
     Dates: start: 20121018
  3. PACLITAXEL [Suspect]
     Indication: BREAST CANCER STAGE IV
     Dates: start: 20121025
  4. PACLITAXEL [Suspect]
     Indication: METASTASES TO LIVER
     Dates: start: 20121025
  5. CARBOPLATIN [Suspect]
     Indication: BREAST CANCER STAGE IV
     Dosage: 2 cycles
     Route: 042
     Dates: start: 20121018
  6. CARBOPLATIN [Suspect]
     Indication: METASTASES TO LIVER
     Dosage: 2 cycles
     Route: 042
     Dates: start: 20121018
  7. CARBOPLATIN [Suspect]
     Indication: BREAST CANCER STAGE IV
     Dates: start: 20121025
  8. CARBOPLATIN [Suspect]
     Indication: METASTASES TO LIVER
     Dates: start: 20121025
  9. OMEPRAZOLE [Concomitant]
  10. FLUVASTATIN [Concomitant]
  11. PAROXITINE [Concomitant]
  12. OXAZEPAM [Concomitant]
  13. RANITIDINE [Concomitant]
  14. MVI CENTRUM SILVER [Concomitant]
  15. CITRACAL [Concomitant]
  16. BABY ASA [Concomitant]

REACTIONS (10)
  - Mucosal inflammation [None]
  - Weight decreased [None]
  - Mobility decreased [None]
  - Dehydration [None]
  - Nausea [None]
  - Vomiting [None]
  - Diarrhoea [None]
  - Neutropenia [None]
  - Hypomagnesaemia [None]
  - Hyperkalaemia [None]
